FAERS Safety Report 16745149 (Version 2)
Quarter: 2019Q3

REPORT INFORMATION
  Report Type: Report from Study
  Country: US (occurrence: US)
  Receive Date: 20190827
  Receipt Date: 20190828
  Transmission Date: 20191005
  Serious: Yes (Life-Threatening, Hospitalization, Other)
  Sender: FDA-Public Use
  Company Number: US-PFIZER INC-2019362790

PATIENT
  Sex: Male

DRUGS (4)
  1. HEPARIN SODIUM. [Suspect]
     Active Substance: HEPARIN SODIUM
     Indication: THROMBOSIS
  2. HEPARIN SODIUM. [Suspect]
     Active Substance: HEPARIN SODIUM
     Indication: BLOOD LACTATE DEHYDROGENASE INCREASED
     Dosage: UNK
  3. INTEGRILIN [Suspect]
     Active Substance: EPTIFIBATIDE
     Indication: THROMBOSIS
  4. INTEGRILIN [Suspect]
     Active Substance: EPTIFIBATIDE
     Indication: BLOOD LACTATE DEHYDROGENASE INCREASED
     Dosage: UNK (DRIP)

REACTIONS (1)
  - Subarachnoid haemorrhage [Unknown]
